FAERS Safety Report 10961992 (Version 2)
Quarter: 2015Q2

REPORT INFORMATION
  Report Type: Spontaneous
  Country: US (occurrence: US)
  Receive Date: 20150327
  Receipt Date: 20150504
  Transmission Date: 20150821
  Serious: No
  Sender: FDA-Public Use
  Company Number: US-LUNDBECK-DKLU1109346

PATIENT
  Age: 61 Year
  Sex: Female
  Weight: 87 kg

DRUGS (9)
  1. NORTHERA [Suspect]
     Active Substance: DROXIDOPA
     Indication: ORTHOSTATIC HYPOTENSION
     Route: 048
     Dates: start: 20150209
  2. NORTHERA [Suspect]
     Active Substance: DROXIDOPA
     Indication: SYNCOPE
     Route: 048
     Dates: start: 201502, end: 201503
  3. PHYSOSTIGMINE [Concomitant]
     Active Substance: PHYSOSTIGMINE
     Indication: PRODUCT USED FOR UNKNOWN INDICATION
     Route: 065
  4. RANITIDINE [Concomitant]
     Active Substance: RANITIDINE\RANITIDINE HYDROCHLORIDE
     Indication: PRODUCT USED FOR UNKNOWN INDICATION
     Route: 065
  5. NORTHERA [Suspect]
     Active Substance: DROXIDOPA
     Indication: NEUROTOXICITY
     Route: 048
     Dates: start: 20150202
  6. NORTHERA [Suspect]
     Active Substance: DROXIDOPA
     Indication: DIZZINESS
  7. CLONAZEPAM. [Concomitant]
     Active Substance: CLONAZEPAM
     Indication: RESTLESS LEGS SYNDROME
     Route: 065
  8. SERTRALINE [Concomitant]
     Active Substance: SERTRALINE HYDROCHLORIDE
     Indication: ANXIETY
     Route: 065
  9. MULTIVITAMINS [Concomitant]
     Active Substance: VITAMINS
     Indication: PRODUCT USED FOR UNKNOWN INDICATION
     Route: 065

REACTIONS (5)
  - Dizziness [Recovered/Resolved]
  - Head discomfort [Recovering/Resolving]
  - Chest pain [Recovered/Resolved]
  - Headache [Recovering/Resolving]
  - Pruritus [Recovering/Resolving]

NARRATIVE: CASE EVENT DATE: 20150208
